FAERS Safety Report 6122805-1 (Version None)
Quarter: 2009Q1

REPORT INFORMATION
  Report Type: 
  Country: None (occurrence: None)
  Receive Date: 20090318
  Receipt Date: 20080912
  Transmission Date: 20090719
  Serious: No
  Sender: FDA-Public Use
  Company Number: US-AMGEN-KDL307360

PATIENT
  Sex: Male

DRUGS (4)
  1. NEUPOGEN [Suspect]
     Indication: HEPATITIS C
  2. NEULASTA [Suspect]
     Indication: HEPATITIS C
  3. LEGALON [Concomitant]
  4. VITAMINS [Concomitant]

REACTIONS (6)
  - HEADACHE [None]
  - INSOMNIA [None]
  - PLATELET COUNT DECREASED [None]
  - TOOTH DISORDER [None]
  - TOOTH FRACTURE [None]
  - WHITE BLOOD CELL COUNT INCREASED [None]
